FAERS Safety Report 25243893 (Version 1)
Quarter: 2025Q2

REPORT INFORMATION
  Report Type: Spontaneous
  Country: US (occurrence: US)
  Receive Date: 20250428
  Receipt Date: 20250428
  Transmission Date: 20250716
  Serious: No
  Sender: MERCK SHARP & DOHME LLC
  Company Number: US-009507513-2276459

PATIENT
  Sex: Male

DRUGS (2)
  1. BELSOMRA [Suspect]
     Active Substance: SUVOREXANT
     Indication: Insomnia
     Route: 048
     Dates: start: 2021
  2. BELSOMRA [Suspect]
     Active Substance: SUVOREXANT
     Indication: Insomnia
     Route: 048
     Dates: end: 202502

REACTIONS (4)
  - Drug ineffective [Not Recovered/Not Resolved]
  - Somnolence [Recovering/Resolving]
  - Product prescribing issue [Unknown]
  - Incorrect dose administered [Unknown]
